FAERS Safety Report 6763011-7 (Version None)
Quarter: 2010Q2

REPORT INFORMATION
  Report Type: 
  Country: None (occurrence: None)
  Receive Date: 20100609
  Receipt Date: 20100601
  Transmission Date: 20101027
  Serious: Yes (Hospitalization)
  Sender: FDA-Public Use
  Company Number: US-ROCHE-708118

PATIENT
  Sex: Female

DRUGS (3)
  1. BEVACIZUMAB [Suspect]
     Dosage: FREQUENCY : OVER 30-90 MIN ON DAYS 1 AND 15, ON 30 APRIL 2010, PATIENT REMOVED FROM STUDY.
     Route: 042
     Dates: start: 20100219
  2. TEMSIROLIMUS [Suspect]
     Dosage: FREQUENCY : ON DAYS 1,8,15,22
     Route: 042
     Dates: start: 20100219
  3. TEMSIROLIMUS [Suspect]
     Dosage: DOSE REDUCED. ON 30 APRIL 2010, PATIENT REMOVED FROM STUDY.
     Route: 042
     Dates: start: 20100319

REACTIONS (2)
  - ATRIAL FIBRILLATION [None]
  - EPISTAXIS [None]
